FAERS Safety Report 6891560-X (Version None)
Quarter: 2010Q3

REPORT INFORMATION
  Report Type: 
  Country: None (occurrence: None)
  Receive Date: 20100731
  Receipt Date: 20040827
  Transmission Date: 20110219
  Serious: No
  Sender: FDA-Public Use
  Company Number: US-PFIZER INC-2007079912

PATIENT
  Sex: Female

DRUGS (5)
  1. NORVASC [Suspect]
     Route: 048
  2. GLIPIZIDE [Suspect]
  3. CLONIDINE [Suspect]
  4. ATENOLOL [Suspect]
  5. COUMADIN [Suspect]

REACTIONS (2)
  - BLOOD PRESSURE INADEQUATELY CONTROLLED [None]
  - FATIGUE [None]
